FAERS Safety Report 5727795-9 (Version None)
Quarter: 2008Q2

REPORT INFORMATION
  Report Type: 
  Country: None (occurrence: None)
  Receive Date: 20080501
  Receipt Date: 20070925
  Transmission Date: 20081010
  Serious: Yes (Other)
  Sender: FDA-Public Use
  Company Number: PHEH2007US11170

PATIENT
  Sex: Female

DRUGS (1)
  1. LOTREL [Suspect]
     Indication: HYPERTENSION
     Dosage: 5/20 MG, ORAL
     Route: 048

REACTIONS (2)
  - PHARYNGEAL OEDEMA [None]
  - SWOLLEN TONGUE [None]
